FAERS Safety Report 10924637 (Version 2)
Quarter: 2015Q2

REPORT INFORMATION
  Report Type: Spontaneous
  Country: US (occurrence: US)
  Receive Date: 20150318
  Receipt Date: 20150524
  Transmission Date: 20150821
  Serious: No
  Sender: FDA-Public Use
  Company Number: US-JNJFOC-20130402382

PATIENT
  Sex: Female
  Weight: 59.88 kg

DRUGS (3)
  1. KETOCONAZOLE 2% [Suspect]
     Active Substance: KETOCONAZOLE
     Indication: FUNGAL INFECTION
     Route: 061
     Dates: start: 2011, end: 2012
  2. FLUCONAZOLE. [Concomitant]
     Active Substance: FLUCONAZOLE
     Indication: FUNGAL INFECTION
     Dates: start: 2012
  3. KETOCONAZOLE 2% [Suspect]
     Active Substance: KETOCONAZOLE
     Indication: FUNGAL INFECTION
     Route: 061
     Dates: start: 2012

REACTIONS (8)
  - Drug ineffective [Unknown]
  - Application site pustules [Recovered/Resolved]
  - Application site erythema [Recovered/Resolved]
  - Alopecia [Recovered/Resolved]
  - Inappropriate schedule of drug administration [Unknown]
  - Application site irritation [Recovered/Resolved]
  - Product container seal issue [Unknown]
  - Product odour abnormal [Unknown]

NARRATIVE: CASE EVENT DATE: 2011
